FAERS Safety Report 5140148-X (Version None)
Quarter: 2006Q4

REPORT INFORMATION
  Report Type: 
  Country: None (occurrence: None)
  Receive Date: 20061025
  Receipt Date: 20061025
  Transmission Date: 20070319
  Serious: Yes (Other)
  Sender: FDA-Public Use
  Company Number: None

PATIENT
  Age: 58 Year
  Sex: Male
  Weight: 86.2 kg

DRUGS (4)
  1. LISINOPRIL [Suspect]
  2. CIPROFLOXACIN HCL [Concomitant]
  3. VARDENAFIL HCL [Concomitant]
  4. DEXTROSE [Concomitant]

REACTIONS (1)
  - HEADACHE [None]
